FAERS Safety Report 9247550 (Version 1)
Quarter: 2013Q1

REPORT INFORMATION
  Report Type: Spontaneous
  Country: US (occurrence: None)
  Receive Date: 20130305
  Receipt Date: 20130305
  Transmission Date: 20140127
  Serious: Yes (Hospitalization)
  Sender: FDA-Public Use
  Company Number: 163-21880-12050873

PATIENT
  Age: 58 Year
  Sex: Male

DRUGS (3)
  1. REVLIMID [Suspect]
     Indication: PLASMA CELL MYELOMA
     Dosage: 5MG, D FOR 21 DAYS, PO
     Route: 048
     Dates: start: 20111220, end: 201204
  2. LASIX (FUROSEMIDE) [Concomitant]
  3. RAMIPRIL (RAMIPRIL) [Concomitant]

REACTIONS (4)
  - Renal failure [None]
  - Blood creatinine increased [None]
  - Diarrhoea [None]
  - Insomnia [None]
